FAERS Safety Report 11964475 (Version 1)
Quarter: 2016Q1

REPORT INFORMATION
  Report Type: Spontaneous
  Country: CO (occurrence: None)
  Receive Date: 20160122
  Receipt Date: 20160122
  Transmission Date: 20160526
  Serious: Yes (Other)
  Sender: FDA-Public Use
  Company Number: None

PATIENT
  Age: 68 Year
  Sex: Male
  Weight: 76 kg

DRUGS (1)
  1. SILDENAFIL BRAND + GENERIC 50 MG [Suspect]
     Active Substance: SILDENAFIL
     Indication: ERECTILE DYSFUNCTION
     Route: 048

REACTIONS (3)
  - Vision blurred [None]
  - Dizziness [None]
  - Ocular discomfort [None]

NARRATIVE: CASE EVENT DATE: 20160120
